FAERS Safety Report 16540876 (Version 3)
Quarter: 2020Q2

REPORT INFORMATION
  Report Type: Spontaneous
  Country: US (occurrence: US)
  Receive Date: 20190708
  Receipt Date: 20200629
  Transmission Date: 20200713
  Serious: No
  Sender: FDA-Public Use
  Company Number: US-SA-2019SA183577

PATIENT

DRUGS (2)
  1. RINVOQ [Concomitant]
     Active Substance: UPADACITINIB
  2. KEVZARA [Suspect]
     Active Substance: SARILUMAB
     Indication: RHEUMATOID ARTHRITIS
     Dosage: 200 MG, QOW
     Route: 058
     Dates: start: 20190717, end: 20200618

REACTIONS (3)
  - Pruritus [Unknown]
  - Rash pruritic [Unknown]
  - Skin disorder [Not Recovered/Not Resolved]

NARRATIVE: CASE EVENT DATE: 2019
